FAERS Safety Report 15858175 (Version 1)
Quarter: 2019Q1

REPORT INFORMATION
  Report Type: Spontaneous
  Country: FR (occurrence: FR)
  Receive Date: 20190123
  Receipt Date: 20190123
  Transmission Date: 20190417
  Serious: Yes (Hospitalization)
  Sender: FDA-Public Use
  Company Number: FR-BAXTER-2019BAX001357

PATIENT
  Age: 57 Year
  Sex: Male

DRUGS (2)
  1. ENDOXAN 1000 MG, POUDRE POUR SOLUTIONINJECTABLE [Suspect]
     Active Substance: CYCLOPHOSPHAMIDE
     Indication: GRANULOMATOSIS WITH POLYANGIITIS
     Dosage: 0.6 G/M2 PER COURSE
     Route: 065
     Dates: start: 20180525, end: 20181012
  2. RITUXIMAB (MAMMAL/HAMPSTER/CHO CELLS) [Suspect]
     Active Substance: RITUXIMAB
     Indication: GRANULOMATOSIS WITH POLYANGIITIS
     Route: 042
     Dates: end: 20180403

REACTIONS (1)
  - Malignant hypertension [Not Recovered/Not Resolved]

NARRATIVE: CASE EVENT DATE: 20181108
